FAERS Safety Report 23528507 (Version 1)
Quarter: 2024Q1

REPORT INFORMATION
  Report Type: Spontaneous
  Country: US (occurrence: US)
  Receive Date: 20240215
  Receipt Date: 20240215
  Transmission Date: 20240410
  Serious: Yes (Hospitalization, Other)
  Sender: FDA-Public Use
  Company Number: US-Stemline Therapeutics, Inc.-2023ST000068

PATIENT
  Age: 80 Year
  Sex: Male

DRUGS (1)
  1. ELZONRIS [Suspect]
     Active Substance: TAGRAXOFUSP-ERZS
     Indication: Blastic plasmacytoid dendritic cell neoplasia
     Dosage: CYCLE 1
     Route: 042
     Dates: start: 20230110, end: 20230114

REACTIONS (3)
  - Dyspnoea [Unknown]
  - Oedema [Unknown]
  - Capillary leak syndrome [Unknown]

NARRATIVE: CASE EVENT DATE: 20230101
